FAERS Safety Report 7222096-4 (Version None)
Quarter: 2011Q1

REPORT INFORMATION
  Report Type: 
  Country: None (occurrence: None)
  Receive Date: 20110112
  Receipt Date: 20110106
  Transmission Date: 20110831
  Serious: Yes (Other)
  Sender: FDA-Public Use
  Company Number: US-JNJFOC-20110101462

PATIENT
  Sex: Male
  Weight: 112.49 kg

DRUGS (1)
  1. REMICADE [Suspect]
     Indication: RHEUMATOID ARTHRITIS
     Dosage: 6 VIALS/SOLUTION
     Route: 042

REACTIONS (1)
  - NEOPLASM MALIGNANT [None]
